FAERS Safety Report 10590332 (Version 1)
Quarter: 2014Q4

REPORT INFORMATION
  Report Type: Spontaneous
  Country: IT (occurrence: IT)
  Receive Date: 20141118
  Receipt Date: 20141118
  Transmission Date: 20150529
  Serious: Yes (Other)
  Sender: FDA-Public Use
  Company Number: IT-WATSON-2014-24455

PATIENT
  Age: 58 Year
  Sex: Female

DRUGS (1)
  1. KETOPROFEN (UNKNOWN) [Suspect]
     Active Substance: KETOPROFEN
     Indication: PRODUCT USED FOR UNKNOWN INDICATION
     Dosage: 80 MG, SINGLE
     Route: 065

REACTIONS (3)
  - Urticaria [Recovered/Resolved]
  - Drug interaction [Recovered/Resolved]
  - Angioedema [Recovered/Resolved]
